FAERS Safety Report 24901147 (Version 1)
Quarter: 2025Q1

REPORT INFORMATION
  Report Type: Spontaneous
  Country: CN (occurrence: CN)
  Receive Date: 20250129
  Receipt Date: 20250129
  Transmission Date: 20250408
  Serious: Yes (Hospitalization)
  Sender: DAIICHI
  Company Number: CN-DSJP-DS-2025-120230-CN

PATIENT
  Age: 93 Year
  Sex: Female
  Weight: 66 kg

DRUGS (7)
  1. EDOXABAN [Suspect]
     Active Substance: EDOXABAN
     Indication: Intestinal ischaemia
     Dosage: 15 MG, QD
     Route: 048
     Dates: start: 20250104, end: 20250108
  2. EDOXABAN [Suspect]
     Active Substance: EDOXABAN
     Indication: Intestinal haemorrhage
  3. EDOXABAN [Suspect]
     Active Substance: EDOXABAN
     Indication: Anticoagulant therapy
  4. SODIUM CHLORIDE [Concomitant]
     Active Substance: SODIUM CHLORIDE
     Indication: Intestinal ischaemia
     Dosage: 20 ML, BID
     Route: 041
     Dates: start: 20250103, end: 20250103
  5. SODIUM CHLORIDE [Concomitant]
     Active Substance: SODIUM CHLORIDE
     Indication: Intestinal haemorrhage
  6. PAPAVERINE HYDROCHLORIDE [Concomitant]
     Active Substance: PAPAVERINE HYDROCHLORIDE
     Indication: Intestinal ischaemia
     Dosage: 30 MG, BID
     Route: 041
     Dates: start: 20250103, end: 20250103
  7. PAPAVERINE HYDROCHLORIDE [Concomitant]
     Active Substance: PAPAVERINE HYDROCHLORIDE
     Indication: Intestinal haemorrhage

REACTIONS (3)
  - Alanine aminotransferase increased [Recovering/Resolving]
  - Aspartate aminotransferase increased [Recovering/Resolving]
  - Gamma-glutamyltransferase increased [Recovering/Resolving]

NARRATIVE: CASE EVENT DATE: 20250108
